FAERS Safety Report 4682784-0 (Version None)
Quarter: 2005Q2

REPORT INFORMATION
  Report Type: 
  Country: None (occurrence: None)
  Receive Date: 20050531
  Receipt Date: 20041025
  Transmission Date: 20051028
  Serious: Yes (Other)
  Sender: FDA-Public Use
  Company Number: 200418211US

PATIENT

DRUGS (3)
  1. LOVENOX [Suspect]
  2. KETOROLAC TROMETHAMINE (TORADOL) [Concomitant]
  3. CELEBREX [Concomitant]

REACTIONS (1)
  - RETROPERITONEAL HAEMATOMA [None]
